FAERS Safety Report 11403171 (Version 1)
Quarter: 2015Q3

REPORT INFORMATION
  Report Type: Spontaneous
  Country: BR (occurrence: BR)
  Receive Date: 20150821
  Receipt Date: 20150821
  Transmission Date: 20151125
  Serious: Yes (Other)
  Sender: FDA-Public Use
  Company Number: BR-ROCHE-1622615

PATIENT
  Sex: Female

DRUGS (9)
  1. RIVOTRIL [Suspect]
     Active Substance: CLONAZEPAM
     Indication: AGITATION
     Route: 065
  2. RIVOTRIL [Suspect]
     Active Substance: CLONAZEPAM
     Indication: DEPRESSION
  3. RIVOTRIL [Suspect]
     Active Substance: CLONAZEPAM
     Indication: ANXIETY
  4. GARDENAL [Concomitant]
     Active Substance: PHENOBARBITAL
  5. LAMOTRIGINE. [Concomitant]
     Active Substance: LAMOTRIGINE
  6. RIVOTRIL [Suspect]
     Active Substance: CLONAZEPAM
     Indication: DISTURBANCE IN ATTENTION
  7. RIVOTRIL [Suspect]
     Active Substance: CLONAZEPAM
     Indication: DEPRESSED MOOD
  8. CAPTOPRIL. [Concomitant]
     Active Substance: CAPTOPRIL
  9. RIVOTRIL [Suspect]
     Active Substance: CLONAZEPAM
     Indication: SEIZURE

REACTIONS (4)
  - Delirium [Not Recovered/Not Resolved]
  - Somnolence [Not Recovered/Not Resolved]
  - Hypertension [Not Recovered/Not Resolved]
  - Nightmare [Not Recovered/Not Resolved]
